FAERS Safety Report 13287489 (Version 1)
Quarter: 2017Q1

REPORT INFORMATION
  Report Type: Spontaneous
  Country: CA (occurrence: CA)
  Receive Date: 20170302
  Receipt Date: 20170302
  Transmission Date: 20170428
  Serious: Yes (Disabling)
  Sender: FDA-Public Use
  Company Number: CA-TEVA-745307ACC

PATIENT
  Age: 6 Month
  Sex: Female
  Weight: 3 kg

DRUGS (4)
  1. TEVA-SERTRALINE [Suspect]
     Active Substance: SERTRALINE HYDROCHLORIDE
     Indication: OBSESSIVE-COMPULSIVE DISORDER
     Dosage: 100 MILLIGRAM DAILY;
     Route: 063
  2. TEVA-SERTRALINE [Suspect]
     Active Substance: SERTRALINE HYDROCHLORIDE
     Indication: ANXIETY
  3. TEVA-SERTRALINE [Suspect]
     Active Substance: SERTRALINE HYDROCHLORIDE
     Indication: DEPRESSION
  4. PRENATAL MULTIPLE VITAMIN [Concomitant]

REACTIONS (8)
  - Developmental delay [Recovering/Resolving]
  - Infantile colic [Recovering/Resolving]
  - Exposure during breast feeding [Recovering/Resolving]
  - Poor weight gain neonatal [Recovering/Resolving]
  - Sleep disorder [Recovering/Resolving]
  - Abnormal behaviour [Recovering/Resolving]
  - Selective eating disorder [Recovering/Resolving]
  - Neonatal disorder [Recovering/Resolving]
